FAERS Safety Report 17067893 (Version 2)
Quarter: 2019Q4

REPORT INFORMATION
  Report Type: Spontaneous
  Country: GB (occurrence: GB)
  Receive Date: 20191122
  Receipt Date: 20191129
  Transmission Date: 20200122
  Serious: Yes (Other)
  Sender: FDA-Public Use
  Company Number: GB-ANIPHARMA-2019-UK-000193

PATIENT
  Age: 56 Year
  Sex: Female

DRUGS (2)
  1. DIMETHYL FUMARATE [Suspect]
     Active Substance: DIMETHYL FUMARATE
     Dosage: 240 MG DAILY, STARTING DOSE / 240 MG DAILY
     Route: 048
     Dates: start: 20191026
  2. ARIMIDEX [Suspect]
     Active Substance: ANASTROZOLE
     Indication: PRODUCT USED FOR UNKNOWN INDICATION
     Dosage: UNK
     Route: 048

REACTIONS (6)
  - Swollen tongue [Unknown]
  - Muscle tightness [Unknown]
  - Diarrhoea [Unknown]
  - Breast cancer [Unknown]
  - Lip swelling [Unknown]
  - Dry throat [Unknown]

NARRATIVE: CASE EVENT DATE: 20191027
